FAERS Safety Report 23075106 (Version 1)
Quarter: 2023Q4

REPORT INFORMATION
  Report Type: Spontaneous
  Country: KR (occurrence: KR)
  Receive Date: 20231017
  Receipt Date: 20231017
  Transmission Date: 20240110
  Serious: Yes (Other)
  Sender: FDA-Public Use
  Company Number: KR-MYLANLABS-2023M1107970

PATIENT
  Age: 82 Year
  Sex: Female

DRUGS (3)
  1. CADUET [Suspect]
     Active Substance: AMLODIPINE BESYLATE\ATORVASTATIN CALCIUM
     Dosage: 1 DOSAGE FORM, QD
     Route: 065
     Dates: start: 20220104, end: 20220203
  2. KALLIDINOGENASE [Suspect]
     Active Substance: KALLIDINOGENASE
     Dosage: 1 DOSAGE FORM, BID
     Route: 065
     Dates: start: 20220104, end: 20220203
  3. ZOLPIDEM TARTRATE [Suspect]
     Active Substance: ZOLPIDEM TARTRATE
     Dosage: 1 DOSAGE FORM, QD
     Route: 065
     Dates: start: 20220104, end: 20220114

REACTIONS (1)
  - Hallucination, visual [Recovered/Resolved]

NARRATIVE: CASE EVENT DATE: 20220104
